FAERS Safety Report 4733068-3 (Version None)
Quarter: 2005Q3

REPORT INFORMATION
  Report Type: 
  Country: None (occurrence: None)
  Receive Date: 20050803
  Receipt Date: 20050722
  Transmission Date: 20060218
  Serious: Yes (Hospitalization)
  Sender: FDA-Public Use
  Company Number: US-AMGEN-US143796

PATIENT
  Sex: Female

DRUGS (13)
  1. ARANESP [Suspect]
     Indication: RENAL FAILURE CHRONIC
     Dates: start: 20050518, end: 20050613
  2. LISINOPRIL [Concomitant]
  3. SYNTHROID [Concomitant]
  4. BUMEX [Concomitant]
  5. NORVASC [Concomitant]
  6. NEXIUM [Concomitant]
  7. KLONOPIN [Concomitant]
  8. MYLANTA [Concomitant]
  9. PHOSLO [Concomitant]
  10. ACETAMINOPHEN [Concomitant]
  11. STRESSTABS [Concomitant]
  12. NOVOLIN 70/30 [Concomitant]
  13. HUMALOG [Concomitant]

REACTIONS (6)
  - ANAEMIA [None]
  - BLOOD CREATININE INCREASED [None]
  - BLOOD UREA INCREASED [None]
  - CARDIAC FAILURE CONGESTIVE [None]
  - CONDITION AGGRAVATED [None]
  - PLATELET COUNT DECREASED [None]
